FAERS Safety Report 11176093 (Version 1)
Quarter: 2015Q2

REPORT INFORMATION
  Report Type: Spontaneous
  Country: IT (occurrence: IT)
  Receive Date: 20150609
  Receipt Date: 20150609
  Transmission Date: 20150821
  Serious: Yes (Life-Threatening)
  Sender: FDA-Public Use
  Company Number: PHHY2015IT066230

PATIENT
  Age: 74 Year
  Sex: Male

DRUGS (1)
  1. CIPROFLOXACIN. [Suspect]
     Active Substance: CIPROFLOXACIN
     Indication: PROPHYLAXIS
     Dosage: 20 MG, ONCE/SINGLE
     Route: 042
     Dates: start: 20150512, end: 20150512

REACTIONS (4)
  - Oxygen saturation decreased [Recovered/Resolved]
  - Angina unstable [Recovered/Resolved]
  - Anaphylactic shock [Recovered/Resolved]
  - Hyperhidrosis [Recovered/Resolved]

NARRATIVE: CASE EVENT DATE: 20150512
